FAERS Safety Report 22246269 (Version 2)
Quarter: 2023Q2

REPORT INFORMATION
  Report Type: Spontaneous
  Country: JP (occurrence: JP)
  Receive Date: 20230424
  Receipt Date: 20230619
  Transmission Date: 20230722
  Serious: Yes (Hospitalization, Other)
  Sender: FDA-Public Use
  Company Number: JP-BRISTOL-MYERS SQUIBB COMPANY-2023-057292

PATIENT
  Age: 53 Year
  Sex: Male
  Weight: 65.4 kg

DRUGS (16)
  1. YERVOY [Suspect]
     Active Substance: IPILIMUMAB
     Indication: Colon cancer
     Route: 041
     Dates: start: 20211220
  2. YERVOY [Suspect]
     Active Substance: IPILIMUMAB
     Route: 041
  3. YERVOY [Suspect]
     Active Substance: IPILIMUMAB
     Route: 041
  4. YERVOY [Suspect]
     Active Substance: IPILIMUMAB
     Route: 041
     Dates: end: 20220221
  5. OPDIVO [Suspect]
     Active Substance: NIVOLUMAB
     Indication: Colon cancer
     Route: 041
     Dates: start: 20211220, end: 20220509
  6. BINIMETINIB [Suspect]
     Active Substance: BINIMETINIB
     Indication: Colon cancer
     Route: 048
     Dates: start: 20220523, end: 20220524
  7. ENCORAFENIB [Suspect]
     Active Substance: ENCORAFENIB
     Indication: Colon cancer
     Route: 048
     Dates: start: 20220523, end: 20220524
  8. CETUXIMAB [Suspect]
     Active Substance: CETUXIMAB
     Indication: Colon cancer
     Route: 041
     Dates: start: 20220523
  9. FEXOFENADINE HYDROCHLORIDE [Concomitant]
     Active Substance: FEXOFENADINE HYDROCHLORIDE
     Indication: Product used for unknown indication
     Route: 048
  10. MINOCYCLINE HYDROCHLORIDE [Concomitant]
     Active Substance: MINOCYCLINE HYDROCHLORIDE
     Indication: Product used for unknown indication
     Route: 048
  11. ACETAMINOPHENK [Concomitant]
     Indication: Product used for unknown indication
     Route: 048
  12. HYDROMORPHONE HYDROCHLORIDE [Concomitant]
     Active Substance: HYDROMORPHONE HYDROCHLORIDE
     Indication: Product used for unknown indication
     Route: 048
  13. LOXOPROFEN SODIUM DIHYDRATE [Concomitant]
     Active Substance: LOXOPROFEN SODIUM DIHYDRATE
     Indication: Product used for unknown indication
     Route: 048
  14. ESOMEPRAZOLE MAGNESIUM [Concomitant]
     Active Substance: ESOMEPRAZOLE MAGNESIUM
     Indication: Product used for unknown indication
     Route: 048
  15. HYDROCORTISONE [Concomitant]
     Active Substance: HYDROCORTISONE
     Indication: Product used for unknown indication
     Route: 048
  16. LEVOTHYROXINE SODIUM [Concomitant]
     Active Substance: LEVOTHYROXINE SODIUM
     Indication: Product used for unknown indication
     Route: 048

REACTIONS (2)
  - Macular oedema [Recovered/Resolved]
  - Adrenal insufficiency [Recovering/Resolving]

NARRATIVE: CASE EVENT DATE: 20220228
